FAERS Safety Report 14229342 (Version 1)
Quarter: 2017Q4

REPORT INFORMATION
  Report Type: Spontaneous
  Country: FR (occurrence: FR)
  Receive Date: 20171128
  Receipt Date: 20171128
  Transmission Date: 20180321
  Serious: Yes (Disabling)
  Sender: FDA-Public Use
  Company Number: FR-MERCK KGAA-2036118

PATIENT
  Age: 52 Year
  Sex: Female

DRUGS (2)
  1. NOVOTHYROX [Suspect]
     Active Substance: LEVOTHYROXINE SODIUM
     Indication: PRODUCT USED FOR UNKNOWN INDICATION
  2. LEVOTHYROXINE SODIUM. [Suspect]
     Active Substance: LEVOTHYROXINE SODIUM

REACTIONS (15)
  - Fatigue [None]
  - Limb discomfort [None]
  - Crying [None]
  - Apathy [None]
  - Loss of personal independence in daily activities [None]
  - Insomnia [None]
  - Headache [None]
  - Arthralgia [None]
  - Weight increased [None]
  - Gait disturbance [None]
  - Hypothyroidism [None]
  - Nervousness [None]
  - Blood thyroid stimulating hormone increased [Recovered/Resolved]
  - Anxiety [None]
  - Mood altered [None]

NARRATIVE: CASE EVENT DATE: 20170918
